FAERS Safety Report 6937320-2 (Version None)
Quarter: 2010Q3

REPORT INFORMATION
  Report Type: 
  Country: None (occurrence: None)
  Receive Date: 20100823
  Receipt Date: 20100811
  Transmission Date: 20110219
  Serious: Yes (Hospitalization)
  Sender: FDA-Public Use
  Company Number: FR-WATSON-2010-11172

PATIENT
  Age: 51 Year
  Sex: Male

DRUGS (3)
  1. FLUOROURACIL [Suspect]
     Indication: NEOPLASM PROGRESSION
     Dosage: UNK
  2. IRINOTECAN HYDROCHLORIDE [Suspect]
     Indication: NEOPLASM PROGRESSION
     Dosage: UNK
  3. LEUCOVORIN CALCIUM [Suspect]
     Indication: NEOPLASM PROGRESSION
     Dosage: UNK

REACTIONS (4)
  - CARDIOGENIC SHOCK [None]
  - CHEST PAIN [None]
  - HYPOKINESIA [None]
  - LEFT VENTRICULAR DYSFUNCTION [None]
